FAERS Safety Report 8399694-8 (Version None)
Quarter: 2012Q2

REPORT INFORMATION
  Report Type: 
  Country: None (occurrence: None)
  Receive Date: 20120531
  Receipt Date: 20120526
  Transmission Date: 20120825
  Serious: Yes (Other)
  Sender: FDA-Public Use
  Company Number: GB-BAYER-2012-047751

PATIENT
  Age: 76 Year
  Sex: Female

DRUGS (1)
  1. ULTRAVIST 300 [Suspect]

REACTIONS (1)
  - NO ADVERSE EVENT [None]
